FAERS Safety Report 13767780 (Version 3)
Quarter: 2017Q3

REPORT INFORMATION
  Report Type: Spontaneous
  Country: US (occurrence: US)
  Receive Date: 20170719
  Receipt Date: 20170925
  Transmission Date: 20171127
  Serious: No
  Sender: FDA-Public Use
  Company Number: US-PFIZER INC-2017305676

PATIENT
  Age: 62 Year
  Sex: Female

DRUGS (1)
  1. METHOTREXATE SODIUM. [Suspect]
     Active Substance: METHOTREXATE SODIUM
     Indication: RHEUMATOID ARTHRITIS
     Dosage: 20 MG (0.80CC), WEEKLY
     Route: 058
     Dates: start: 20170313

REACTIONS (5)
  - Erythema [Unknown]
  - Kyphosis [Unknown]
  - Gait disturbance [Unknown]
  - Oedema peripheral [Unknown]
  - Drug ineffective [Unknown]
